FAERS Safety Report 6051911-5 (Version None)
Quarter: 2009Q1

REPORT INFORMATION
  Report Type: 
  Country: None (occurrence: None)
  Receive Date: 20090126
  Receipt Date: 20090114
  Transmission Date: 20090719
  Serious: Yes (Hospitalization, Other)
  Sender: FDA-Public Use
  Company Number: US-PFIZER INC-001-0073-960029

PATIENT
  Sex: Female

DRUGS (10)
  1. DILANTIN [Suspect]
     Indication: TEMPORAL LOBE EPILEPSY
     Dosage: SEE TEXT
     Route: 048
     Dates: start: 19880101
  2. DILANTIN [Suspect]
     Indication: TEMPORAL LOBE EPILEPSY
     Dosage: SEE TEXT
     Route: 048
     Dates: start: 19880101
  3. DILANTIN [Suspect]
     Indication: CONVULSION
     Dosage: SEE TEXT
     Route: 048
  4. SYNTHROID [Concomitant]
  5. ZOLOFT [Concomitant]
  6. RESTORIL [Concomitant]
  7. NORPRAMIN [Concomitant]
  8. NEURONTIN [Concomitant]
     Dates: start: 19950725, end: 19950815
  9. DESERYL [Concomitant]
  10. REMERON [Concomitant]
     Dates: start: 19970601

REACTIONS (4)
  - ANTICONVULSANT DRUG LEVEL BELOW THERAPEUTIC [None]
  - DEPRESSION [None]
  - INSOMNIA [None]
  - UNEVALUABLE EVENT [None]
